FAERS Safety Report 9759743 (Version 2)
Quarter: 2015Q3

REPORT INFORMATION
  Report Type: Spontaneous
  Country: US (occurrence: US)
  Receive Date: 20131216
  Receipt Date: 20150806
  Transmission Date: 20151125
  Serious: No
  Sender: FDA-Public Use
  Company Number: US-GILEAD-2010-0029100

PATIENT
  Age: 67 Year
  Sex: Female
  Weight: 54.5 kg

DRUGS (15)
  1. GRAPE SEED [Concomitant]
  2. ZETIA [Concomitant]
     Active Substance: EZETIMIBE
  3. LUTEIN PLUS [Concomitant]
  4. CITRACAL [Concomitant]
     Active Substance: CALCIUM CITRATE
  5. PREDNISONE. [Concomitant]
     Active Substance: PREDNISONE
  6. FLOVENT [Concomitant]
     Active Substance: FLUTICASONE PROPIONATE
  7. LETAIRIS [Suspect]
     Active Substance: AMBRISENTAN
     Indication: PULMONARY ARTERIAL HYPERTENSION
     Route: 048
     Dates: start: 20100420, end: 20100430
  8. BISCODYL [Concomitant]
     Active Substance: BISACODYL
  9. SYNTHROID [Concomitant]
     Active Substance: LEVOTHYROXINE SODIUM
  10. FISH OIL [Concomitant]
     Active Substance: FISH OIL
  11. PRILOSEC [Concomitant]
     Active Substance: OMEPRAZOLE MAGNESIUM
  12. LASIX [Concomitant]
     Active Substance: FUROSEMIDE
  13. ANTIVERT [Concomitant]
     Active Substance: MECLIZINE HYDROCHLORIDE
  14. KLOR-CON [Concomitant]
     Active Substance: POTASSIUM CHLORIDE
  15. PROAIR HFA [Concomitant]
     Active Substance: ALBUTEROL SULFATE

REACTIONS (2)
  - Hyperhidrosis [Recovered/Resolved]
  - Palpitations [Recovered/Resolved]

NARRATIVE: CASE EVENT DATE: 20100430
